FAERS Safety Report 12691299 (Version 1)
Quarter: 2016Q3

REPORT INFORMATION
  Report Type: Spontaneous
  Country: JP (occurrence: JP)
  Receive Date: 20160826
  Receipt Date: 20160826
  Transmission Date: 20161109
  Serious: Yes (Hospitalization, Other)
  Sender: FDA-Public Use
  Company Number: JP-BAYER-2016-161946

PATIENT
  Age: 16 Year
  Sex: Female

DRUGS (5)
  1. WARFARIN [Suspect]
     Active Substance: WARFARIN
     Indication: CORONARY ARTERY ANEURYSM
     Route: 048
  2. LOXOPROFEN [Concomitant]
     Active Substance: LOXOPROFEN
     Indication: BACK PAIN
     Route: 048
  3. LOXOPROFEN [Concomitant]
     Active Substance: LOXOPROFEN
     Indication: PAIN IN EXTREMITY
  4. BUCOLOME [Concomitant]
     Active Substance: BUCOLOME
     Indication: CORONARY ARTERY ANEURYSM
     Dosage: UNK
     Route: 048
  5. ACETYLSALICYLIC ACID({=100 MG) [Suspect]
     Active Substance: ASPIRIN
     Indication: CORONARY ARTERY ANEURYSM
     Route: 048

REACTIONS (14)
  - Hypoaesthesia [None]
  - Back pain [None]
  - Haematuria [None]
  - Pallor [None]
  - Pain in extremity [None]
  - Prothrombin time prolonged [None]
  - Peripheral swelling [None]
  - Haematoma [None]
  - Emotional distress [None]
  - Epistaxis [Recovered/Resolved]
  - Drug administration error [None]
  - Haemorrhage subcutaneous [None]
  - Haemorrhagic anaemia [None]
  - Labelled drug-drug interaction medication error [None]
